FAERS Safety Report 7465952-4 (Version None)
Quarter: 2011Q2

REPORT INFORMATION
  Report Type: 
  Country: None (occurrence: None)
  Receive Date: 20110509
  Receipt Date: 20100512
  Transmission Date: 20111010
  Serious: No
  Sender: FDA-Public Use
  Company Number: US-ALEXION-A201000549

PATIENT

DRUGS (15)
  1. PREDNISONE [Suspect]
     Route: 048
  2. FOLIC ACID [Concomitant]
     Dosage: UNK
     Route: 048
  3. SOLIRIS [Suspect]
     Dosage: 900 MG, Q2W
     Route: 042
     Dates: start: 20100208
  4. PREDNISONE [Suspect]
     Dosage: 10 MG, QD
     Route: 048
  5. ASPIRIN [Concomitant]
     Dosage: UNK
     Route: 048
  6. CALCIUM [Concomitant]
     Dosage: UNK
     Route: 048
  7. NORCO [Concomitant]
     Dosage: UNK
     Route: 048
  8. SOLIRIS [Suspect]
     Indication: PAROXYSMAL NOCTURNAL HAEMOGLOBINURIA
     Dosage: 600 MG, QW
     Route: 042
     Dates: start: 20100111, end: 20100201
  9. COUMADIN [Concomitant]
     Indication: BUDD-CHIARI SYNDROME
     Dosage: 40 MG/WEEK
     Route: 048
  10. SPIRONOLACTONE [Concomitant]
     Dosage: UNK
     Route: 048
  11. DANAZOL [Concomitant]
     Dosage: UNK
     Route: 048
  12. PRILOSEC [Concomitant]
     Dosage: UNK
     Route: 048
  13. LASIX [Concomitant]
     Dosage: UNK
     Route: 048
  14. ATIVAN [Concomitant]
     Dosage: UNK
     Route: 048
  15. POTASSIUM [Concomitant]
     Dosage: UNK
     Route: 048

REACTIONS (3)
  - FATIGUE [None]
  - BACK PAIN [None]
  - ARTHRALGIA [None]
